FAERS Safety Report 6019111-2 (Version None)
Quarter: 2008Q4

REPORT INFORMATION
  Report Type: 
  Country: None (occurrence: None)
  Receive Date: 20081224
  Receipt Date: 20081215
  Transmission Date: 20090506
  Serious: Yes (Hospitalization)
  Sender: FDA-Public Use
  Company Number: US-AVENTIS-200818505US

PATIENT
  Sex: Female

DRUGS (3)
  1. ALLEGRA-D 12 HOUR [Suspect]
     Dosage: DOSE: UNK
     Route: 048
  2. DIOVANE [Concomitant]
     Dosage: DOSE: UNK
  3. VITAMINS [Concomitant]
     Dosage: DOSE: UNK

REACTIONS (2)
  - LIMB INJURY [None]
  - ROAD TRAFFIC ACCIDENT [None]
